FAERS Safety Report 4537214-6 (Version None)
Quarter: 2004Q4

REPORT INFORMATION
  Report Type: 
  Country: None (occurrence: None)
  Receive Date: 20041223
  Receipt Date: 20041213
  Transmission Date: 20050328
  Serious: Yes (Hospitalization)
  Sender: FDA-Public Use
  Company Number: PHFR2004GB04566

PATIENT
  Age: 12 Year
  Sex: Male

DRUGS (12)
  1. DICLOFENAC SODIUM [Suspect]
     Indication: PAIN
     Dosage: 50 MG, TID
     Route: 048
     Dates: start: 20040819, end: 20040825
  2. AMBISOME [Suspect]
     Indication: PYREXIA
     Dosage: 130 MG, QD
     Route: 042
     Dates: start: 20040801, end: 20040826
  3. FUSIDIC ACID [Concomitant]
     Indication: OSTEOMYELITIS
     Dosage: 500 MG, TID
     Route: 048
     Dates: start: 20040825, end: 20040827
  4. FLUCLOXACILLIN [Concomitant]
     Indication: OSTEOMYELITIS
     Dosage: 2 G, QID
     Route: 042
     Dates: start: 20040825, end: 20040827
  5. MEROPENEM [Concomitant]
     Dosage: 860 MG, TID
     Route: 042
     Dates: start: 20040819, end: 20040825
  6. TEICOPLANIN [Concomitant]
     Dosage: 400 MG, QD
     Route: 042
     Dates: start: 20040819, end: 20040825
  7. DIHYDROCODEINE [Concomitant]
     Indication: PAIN
     Dosage: 30 MG, QID
     Route: 048
  8. ONDANSETRON [Concomitant]
     Dosage: 4MG PRN
  9. PARACETAMOL [Concomitant]
     Indication: PAIN
     Dosage: 750 MG, QID
     Route: 048
  10. VINCRISTINE [Concomitant]
     Dates: start: 20040728
  11. ACTINOMYCINES [Concomitant]
     Dates: start: 20040728
  12. IFOSFAMIDE [Concomitant]
     Dates: start: 20040728

REACTIONS (5)
  - BACTERAEMIA [None]
  - BACTERIAL SEPSIS [None]
  - METASTASIS [None]
  - NEOPLASM RECURRENCE [None]
  - RENAL IMPAIRMENT [None]
